FAERS Safety Report 16534361 (Version 1)
Quarter: 2019Q3

REPORT INFORMATION
  Report Type: Spontaneous
  Country: AU (occurrence: AU)
  Receive Date: 20190705
  Receipt Date: 20190705
  Transmission Date: 20191004
  Serious: Yes (Other)
  Sender: FDA-Public Use
  Company Number: AU-GILEAD-2019-0416809

PATIENT
  Age: 43 Year
  Sex: Female
  Weight: 79.6 kg

DRUGS (2)
  1. SOFOSBUVIR [Suspect]
     Active Substance: SOFOSBUVIR
     Indication: HEPATITIS C
     Dosage: 400 MG, QD
     Route: 048
     Dates: start: 20160414, end: 20160426
  2. DAKLINZA [Suspect]
     Active Substance: DACLATASVIR
     Indication: HEPATITIS C
     Dosage: 60 MG, QD
     Route: 048
     Dates: start: 20160414, end: 20160426

REACTIONS (12)
  - Dry mouth [Recovered/Resolved]
  - Mental impairment [Recovered/Resolved]
  - Thirst [Recovered/Resolved]
  - Anxiety [Recovered/Resolved]
  - Sinusitis [Unknown]
  - Nervousness [Recovered/Resolved]
  - Disturbance in attention [Recovered/Resolved]
  - Depression [Recovered/Resolved]
  - Acute sinusitis [Recovered/Resolved]
  - Vertigo [Recovered/Resolved]
  - Memory impairment [Recovered/Resolved]
  - Anxiety [Unknown]

NARRATIVE: CASE EVENT DATE: 20160416
